FAERS Safety Report 6526938-7 (Version None)
Quarter: 2010Q1

REPORT INFORMATION
  Report Type: 
  Country: None (occurrence: None)
  Receive Date: 20100104
  Receipt Date: 20100104
  Transmission Date: 20100710
  Serious: No
  Sender: FDA-Public Use
  Company Number: None

PATIENT
  Age: 29 Year
  Sex: Female
  Weight: 72.5755 kg

DRUGS (2)
  1. PAROXETINE HCL [Suspect]
     Indication: DEPRESSION
     Dosage: 50MG DAILY ORAL
     Route: 048
     Dates: start: 20090601, end: 20091101
  2. PAROXETINE HCL [Suspect]

REACTIONS (6)
  - ALCOHOLISM [None]
  - ALOPECIA [None]
  - DIARRHOEA [None]
  - DRY MOUTH [None]
  - HYPERHIDROSIS [None]
  - TREMOR [None]
